FAERS Safety Report 4367286-3 (Version None)
Quarter: 2004Q2

REPORT INFORMATION
  Report Type: 
  Country: None (occurrence: None)
  Receive Date: 20040524
  Receipt Date: 20040512
  Transmission Date: 20050107
  Serious: Yes (Hospitalization, Other)
  Sender: FDA-Public Use
  Company Number: HQWYE525020APR04

PATIENT
  Age: 89 Year
  Sex: Female

DRUGS (2)
  1. ETODOLAC [Suspect]
     Indication: LOCALISED OSTEOARTHRITIS
     Dosage: 400 MG PER DAY ORAL
     Route: 048
     Dates: start: 20030201, end: 20030101
  2. INDOMETHACIN [Concomitant]

REACTIONS (32)
  - ABDOMINAL ABSCESS [None]
  - ABDOMINAL DISTENSION [None]
  - ABDOMINAL PAIN LOWER [None]
  - ANOREXIA [None]
  - ARTHRALGIA [None]
  - BLOOD ALBUMIN DECREASED [None]
  - BLOOD POTASSIUM DECREASED [None]
  - BLOOD PRESSURE DECREASED [None]
  - C-REACTIVE PROTEIN INCREASED [None]
  - CHOLECYSTITIS ACUTE [None]
  - CHOLECYSTITIS CHRONIC [None]
  - CHOLELITHIASIS [None]
  - DEHYDRATION [None]
  - DIARRHOEA [None]
  - DISSEMINATED INTRAVASCULAR COAGULATION [None]
  - ENTERITIS [None]
  - FLATULENCE [None]
  - GASTROINTESTINAL EROSION [None]
  - HAEMOGLOBIN DECREASED [None]
  - HEART RATE IRREGULAR [None]
  - INTESTINAL ISCHAEMIA [None]
  - LARGE INTESTINAL HAEMORRHAGE [None]
  - LARGE INTESTINAL ULCER [None]
  - LARGE INTESTINE PERFORATION [None]
  - METABOLIC ACIDOSIS [None]
  - NAUSEA [None]
  - OXYGEN SATURATION DECREASED [None]
  - PERITONEAL ABSCESS [None]
  - PERITONITIS [None]
  - PROTEIN TOTAL DECREASED [None]
  - RENAL IMPAIRMENT [None]
  - SCAR [None]
